FAERS Safety Report 5625921-3 (Version None)
Quarter: 2008Q1

REPORT INFORMATION
  Report Type: 
  Country: None (occurrence: None)
  Receive Date: 20080212
  Receipt Date: 20080212
  Transmission Date: 20080703
  Serious: Yes (Hospitalization)
  Sender: FDA-Public Use
  Company Number: None

PATIENT
  Age: 5 Year
  Sex: Female

DRUGS (3)
  1. RACEPINEPHRINE -S2 BRAND-  2.25%   NEPHRON PHARMACEUTICALS [Suspect]
     Indication: CROUP INFECTIOUS
     Dosage: 0.5ML ONCE  INHAL
     Route: 055
     Dates: start: 20080115, end: 20080115
  2. DEXAMETHASONE TAB [Concomitant]
  3. IBUPROFEN [Concomitant]

REACTIONS (2)
  - DYSPNOEA [None]
  - PHARMACEUTICAL PRODUCT COMPLAINT [None]
